FAERS Safety Report 7266993-2 (Version None)
Quarter: 2011Q1

REPORT INFORMATION
  Report Type: 
  Country: None (occurrence: None)
  Receive Date: 20110201
  Receipt Date: 20110127
  Transmission Date: 20110831
  Serious: Yes (Life-Threatening, Other)
  Sender: FDA-Public Use
  Company Number: BR-ASTELLAS-2011US000330

PATIENT

DRUGS (1)
  1. PROGRAF [Suspect]
     Indication: LIVER TRANSPLANT
     Dosage: UNK
     Route: 065
     Dates: start: 20040101

REACTIONS (2)
  - DIABETIC HYPEROSMOLAR COMA [None]
  - HYPERGLYCAEMIA [None]
